FAERS Safety Report 14841608 (Version 1)
Quarter: 2018Q2

REPORT INFORMATION
  Report Type: Report from Study
  Country: US (occurrence: US)
  Receive Date: 20180503
  Receipt Date: 20180503
  Transmission Date: 20180711
  Serious: Yes (Hospitalization, Other)
  Sender: FDA-Public Use
  Company Number: US-TESARO, INC-US-2018TSO02112

PATIENT

DRUGS (4)
  1. ZEJULA [Suspect]
     Active Substance: NIRAPARIB
     Indication: RETROPERITONEAL CANCER
     Dosage: 300 MG, QD
     Route: 048
     Dates: start: 20171004
  2. ABRAXANE [Suspect]
     Active Substance: PACLITAXEL
     Indication: PRODUCT USED FOR UNKNOWN INDICATION
     Dosage: UNK
     Dates: end: 20180328
  3. ZEJULA [Suspect]
     Active Substance: NIRAPARIB
     Dosage: 200 MG, QD FOR 21 DAYS
     Route: 048
     Dates: start: 20180427
  4. DOXIL [Suspect]
     Active Substance: DOXORUBICIN HYDROCHLORIDE
     Indication: PRODUCT USED FOR UNKNOWN INDICATION
     Dosage: UNK
     Dates: start: 201712

REACTIONS (6)
  - Inappropriate schedule of drug administration [Not Recovered/Not Resolved]
  - Sepsis [Recovered/Resolved]
  - Carbohydrate antigen 125 increased [Not Recovered/Not Resolved]
  - Bone marrow failure [Not Recovered/Not Resolved]
  - Chills [Recovered/Resolved]
  - Tremor [Recovered/Resolved]

NARRATIVE: CASE EVENT DATE: 201804
